FAERS Safety Report 8054186 (Version 3)
Quarter: 2013Q1

REPORT INFORMATION
  Report Type: Report from Study
  Country: DE (occurrence: DE)
  Receive Date: 20110726
  Receipt Date: 20130313
  Transmission Date: 20140127
  Serious: Yes (Hospitalization, Other)
  Sender: FDA-Public Use
  Company Number: DE-ASTELLAS-2011US004157

PATIENT
  Age: 64 Year
  Sex: Male

DRUGS (4)
  1. ERLOTINIB TABLET [Suspect]
     Indication: NON-SMALL CELL LUNG CANCER
     Dosage: 150 MG, UID/QD
     Route: 048
     Dates: start: 20110107, end: 20110208
  2. CLEXANE [Concomitant]
     Indication: THROMBOSIS PROPHYLAXIS
     Dosage: UNK
     Route: 065
     Dates: start: 20110207
  3. CLEXANE [Concomitant]
     Dosage: 40 MG, UNKNOWN/D
     Route: 065
     Dates: start: 20110208, end: 20110215
  4. CLEXANE [Concomitant]
     Dosage: 80 MG, UNKNOWN/D
     Route: 065
     Dates: start: 20110216

REACTIONS (7)
  - Pulmonary embolism [Recovering/Resolving]
  - Pneumonia [Recovered/Resolved]
  - Malignant neoplasm progression [Unknown]
  - Tracheobronchitis [Recovered/Resolved]
  - Neoplasm progression [Unknown]
  - Leukopenia [Unknown]
  - Anaemia [Unknown]
